FAERS Safety Report 19889284 (Version 3)
Quarter: 2021Q4

REPORT INFORMATION
  Report Type: Spontaneous
  Country: US (occurrence: US)
  Receive Date: 20210927
  Receipt Date: 20211116
  Transmission Date: 20220304
  Serious: Yes (Hospitalization)
  Sender: FDA-Public Use
  Company Number: US-CELGENE-USA-20210905623

PATIENT
  Age: 70 Year
  Sex: Female

DRUGS (7)
  1. REVLIMID [Suspect]
     Active Substance: LENALIDOMIDE
     Indication: Plasma cell myeloma
     Dosage: 10 MILLIGRAM
     Route: 048
     Dates: start: 201606
  2. REVLIMID [Suspect]
     Active Substance: LENALIDOMIDE
     Dosage: 10-5 MILLIGRAM
     Route: 048
     Dates: start: 201702
  3. REVLIMID [Suspect]
     Active Substance: LENALIDOMIDE
     Dosage: 5 MILLIGRAM
     Route: 048
     Dates: start: 202008, end: 20210820
  4. REVLIMID [Suspect]
     Active Substance: LENALIDOMIDE
     Dosage: 5 MILLIGRAM
     Route: 048
     Dates: start: 20210908
  5. Covid vaccines [Concomitant]
     Indication: COVID-19
     Dosage: DOSE 1
     Route: 065
     Dates: start: 20210223, end: 20210223
  6. Covid vaccines [Concomitant]
     Dosage: DOSE 2
     Route: 065
     Dates: start: 20210327, end: 20210327
  7. Covid vaccines [Concomitant]
     Dosage: DOSE 3
     Route: 065
     Dates: start: 20211108, end: 20211108

REACTIONS (1)
  - COVID-19 [Recovered/Resolved]

NARRATIVE: CASE EVENT DATE: 20210820
